FAERS Safety Report 8247588-0 (Version None)
Quarter: 2012Q1

REPORT INFORMATION
  Report Type: 
  Country: None (occurrence: None)
  Receive Date: 20120330
  Receipt Date: 20120321
  Transmission Date: 20120608
  Serious: Yes (Other)
  Sender: FDA-Public Use
  Company Number: PHHY2012JP025920

PATIENT
  Sex: Male
  Weight: 1.9 kg

DRUGS (4)
  1. RITODRINE HCL [Suspect]
     Route: 064
  2. CLARITHROMYCIN [Suspect]
     Route: 064
  3. CEFTRIAXONE SODIUM [Suspect]
     Route: 064
  4. CEFAZOLIN SODIUM [Suspect]
     Route: 064

REACTIONS (4)
  - LOW BIRTH WEIGHT BABY [None]
  - PREMATURE BABY [None]
  - FOETAL HEART RATE INCREASED [None]
  - FOETAL EXPOSURE DURING PREGNANCY [None]
